FAERS Safety Report 8372655-0 (Version None)
Quarter: 2012Q2

REPORT INFORMATION
  Report Type: 
  Country: None (occurrence: None)
  Receive Date: 20120521
  Receipt Date: 20120507
  Transmission Date: 20120825
  Serious: Yes (Other)
  Sender: FDA-Public Use
  Company Number: JP-UCBSA-057076

PATIENT
  Age: 11 Year
  Weight: 17 kg

DRUGS (1)
  1. KEPPRA [Suspect]
     Route: 048

REACTIONS (6)
  - HEADACHE [None]
  - BLEPHAROSPASM [None]
  - AGITATION [None]
  - EPILEPSY [None]
  - RESPIRATORY ARREST [None]
  - NASAL CONGESTION [None]
